FAERS Safety Report 25534157 (Version 2)
Quarter: 2025Q3

REPORT INFORMATION
  Report Type: Spontaneous
  Country: US (occurrence: US)
  Receive Date: 20250709
  Receipt Date: 20250714
  Transmission Date: 20251021
  Serious: No
  Sender: SANOFI AVENTIS
  Company Number: US-SA-2025SA192839

PATIENT
  Sex: Female
  Weight: 52.16 kg

DRUGS (1)
  1. DUPIXENT [Suspect]
     Active Substance: DUPILUMAB
     Dosage: 300 MG, QOW
     Route: 058

REACTIONS (5)
  - Skin disorder [Unknown]
  - Condition aggravated [Unknown]
  - Product dose omission issue [Unknown]
  - Rash [Unknown]
  - Off label use [Unknown]
